FAERS Safety Report 5819759-1 (Version None)
Quarter: 2008Q3

REPORT INFORMATION
  Report Type: 
  Country: None (occurrence: None)
  Receive Date: 20080723
  Receipt Date: 20080711
  Transmission Date: 20090109
  Serious: Yes (Other)
  Sender: FDA-Public Use
  Company Number: US-PFIZER INC-2008058641

PATIENT
  Sex: Male

DRUGS (2)
  1. XALATAN [Suspect]
  2. PREDNISONE TAB [Suspect]
     Indication: EMPHYSEMA

REACTIONS (7)
  - CATARACT [None]
  - CORRECTIVE LENS USER [None]
  - DYSPNOEA [None]
  - EYE DISORDER [None]
  - GAIT DISTURBANCE [None]
  - LUNG INFECTION [None]
  - OCULAR VASCULAR DISORDER [None]
